FAERS Safety Report 21818785 (Version 1)
Quarter: 2023Q1

REPORT INFORMATION
  Report Type: Spontaneous
  Country: FR (occurrence: FR)
  Receive Date: 20230104
  Receipt Date: 20230104
  Transmission Date: 20230417
  Serious: Yes (Death, Hospitalization, Other)
  Sender: FDA-Public Use
  Company Number: None

PATIENT
  Age: 60 Year
  Sex: Male

DRUGS (1)
  1. KETOPROFEN [Suspect]
     Active Substance: KETOPROFEN
     Indication: Arthralgia
     Dosage: 100 MILLIGRAM, QD
     Route: 048
     Dates: start: 20220329, end: 20220331

REACTIONS (6)
  - Shock [Fatal]
  - Lung disorder [Not Recovered/Not Resolved]
  - Coma [Not Recovered/Not Resolved]
  - Feeling drunk [Not Recovered/Not Resolved]
  - Oedema [Not Recovered/Not Resolved]
  - Dizziness [Not Recovered/Not Resolved]

NARRATIVE: CASE EVENT DATE: 20220402
